FAERS Safety Report 4753820-8 (Version None)
Quarter: 2005Q3

REPORT INFORMATION
  Report Type: 
  Country: None (occurrence: None)
  Receive Date: 20050826
  Receipt Date: 20040924
  Transmission Date: 20060218
  Serious: Yes (Other)
  Sender: FDA-Public Use
  Company Number: GB-ABBOTT-04P-167-0274683-00

PATIENT
  Sex: Female
  Weight: 97 kg

DRUGS (14)
  1. HUMIRA [Suspect]
     Indication: DRUG USE FOR UNKNOWN INDICATION
     Route: 058
     Dates: end: 20040921
  2. HUMIRA [Suspect]
     Dates: start: 20041005
  3. PREDNISOLONE [Concomitant]
     Indication: DRUG USE FOR UNKNOWN INDICATION
  4. PREDNISOLONE [Concomitant]
     Route: 048
  5. CIPROFLOXACIN [Concomitant]
     Indication: DRUG USE FOR UNKNOWN INDICATION
     Route: 048
  6. FOLIC ACID [Concomitant]
     Indication: DRUG USE FOR UNKNOWN INDICATION
     Route: 048
  7. PARACETAMOL [Concomitant]
     Indication: DRUG USE FOR UNKNOWN INDICATION
  8. PARACETAMOL [Concomitant]
     Route: 048
  9. TERMISALEN [Concomitant]
     Indication: DRUG USE FOR UNKNOWN INDICATION
  10. VENLAFAXINE [Concomitant]
     Indication: DRUG USE FOR UNKNOWN INDICATION
  11. HST [Concomitant]
     Indication: DRUG USE FOR UNKNOWN INDICATION
     Route: 048
  12. METHOTREXATE [Concomitant]
     Indication: DRUG USE FOR UNKNOWN INDICATION
     Route: 048
  13. AMITRIPTYLINE HCL [Concomitant]
     Indication: DRUG USE FOR UNKNOWN INDICATION
  14. DIHYDROCODEINE [Concomitant]
     Indication: DRUG USE FOR UNKNOWN INDICATION

REACTIONS (1)
  - HERPES SIMPLEX [None]
